FAERS Safety Report 20058445 (Version 1)
Quarter: 2021Q4

REPORT INFORMATION
  Report Type: Spontaneous
  Country: BR (occurrence: None)
  Receive Date: 20211111
  Receipt Date: 20211111
  Transmission Date: 20220303
  Serious: Yes (Hospitalization, Other)
  Sender: FDA-Public Use
  Company Number: 2021A797186

PATIENT
  Age: 51 Year
  Sex: Male
  Weight: 96 kg

DRUGS (6)
  1. PROPOFOL [Suspect]
     Active Substance: PROPOFOL
     Dosage: UNKNOWN
     Route: 042
  2. CRESTOR [Suspect]
     Active Substance: ROSUVASTATIN CALCIUM
     Indication: Dyslipidaemia
     Route: 048
  3. ACETAMINOPHEN [Suspect]
     Active Substance: ACETAMINOPHEN
     Dosage: 750.0MG UNKNOWN
     Route: 065
     Dates: start: 20210221, end: 20210222
  4. ACETAMINOPHEN\CODEINE PHOSPHATE [Suspect]
     Active Substance: ACETAMINOPHEN\CODEINE PHOSPHATE
     Dosage: UNKNOWN
     Route: 065
     Dates: start: 20210221, end: 20210225
  5. PIPERACILLIN AND TAZOBACTAM [Suspect]
     Active Substance: PIPERACILLIN SODIUM\TAZOBACTAM SODIUM
     Dosage: UNKNOWN
     Route: 065
     Dates: start: 20210301, end: 20210304
  6. FENTANYL [Suspect]
     Active Substance: FENTANYL
     Dosage: UNKNOWN
     Route: 065

REACTIONS (2)
  - COVID-19 [Recovered/Resolved]
  - Drug-induced liver injury [Unknown]

NARRATIVE: CASE EVENT DATE: 20210220
